FAERS Safety Report 19679106 (Version 3)
Quarter: 2021Q4

REPORT INFORMATION
  Report Type: Report from Study
  Country: FR (occurrence: FR)
  Receive Date: 20210810
  Receipt Date: 20211006
  Transmission Date: 20220303
  Serious: Yes (Hospitalization)
  Sender: FDA-Public Use
  Company Number: FR-GLAXOSMITHKLINE-FR2021GSK058494

PATIENT
  Age: 54 Year
  Sex: Female
  Weight: 84 kg

DRUGS (14)
  1. NIRAPARIB [Suspect]
     Active Substance: NIRAPARIB
     Indication: Ovarian cancer
     Dosage: 300 MG, QD
     Dates: end: 20210303
  2. DOSTARLIMAB [Suspect]
     Active Substance: DOSTARLIMAB
     Indication: Ovarian cancer
     Dosage: 500 MG
     Dates: start: 20200807, end: 20200807
  3. DOSTARLIMAB [Suspect]
     Active Substance: DOSTARLIMAB
     Dosage: 1000 MG
     Dates: start: 20210127, end: 20210127
  4. CARBOPLATIN [Suspect]
     Active Substance: CARBOPLATIN
     Indication: Ovarian cancer
     Dosage: 5 AUC
     Route: 042
     Dates: start: 20200717, end: 20200717
  5. CARBOPLATIN [Suspect]
     Active Substance: CARBOPLATIN
     Dosage: 5 AUC
     Route: 042
     Dates: start: 20201216, end: 20201216
  6. PACLITAXEL [Suspect]
     Active Substance: PACLITAXEL
     Indication: Ovarian cancer
     Dosage: 324 MG
     Route: 042
     Dates: start: 20200717, end: 20200717
  7. PACLITAXEL [Suspect]
     Active Substance: PACLITAXEL
     Dosage: 318 MG
     Route: 042
     Dates: start: 20201118, end: 20201118
  8. BEVACIZUMAB [Suspect]
     Active Substance: BEVACIZUMAB
     Indication: Ovarian cancer
     Dosage: UNK
     Route: 042
  9. BEVACIZUMAB [Suspect]
     Active Substance: BEVACIZUMAB
     Dosage: 1225 MG/KG
     Route: 042
     Dates: start: 20210217, end: 20210217
  10. CISPLATIN [Concomitant]
     Active Substance: CISPLATIN
     Dosage: UNK
  11. DOCETAXEL [Concomitant]
     Active Substance: DOCETAXEL
     Dosage: UNK
  12. POLYVALENT IMMUNOGLOBULIN G [Concomitant]
     Dosage: 1G/KG (90 KG TOTAL GIVEN)
     Route: 042
     Dates: start: 20210309
  13. DEXAMETHASONE [Concomitant]
     Active Substance: DEXAMETHASONE
     Dosage: 40 MG, BID
     Dates: start: 20210308, end: 20210311
  14. RBC (RED BLOOD CELLS) [Concomitant]
     Dosage: 1 UNIT
     Dates: start: 20210307, end: 20210307

REACTIONS (1)
  - Thrombocytopenia [Recovered/Resolved]

NARRATIVE: CASE EVENT DATE: 20210305
